FAERS Safety Report 10152849 (Version 1)
Quarter: 2014Q2

REPORT INFORMATION
  Report Type: Spontaneous
  Country: US (occurrence: None)
  Receive Date: 20140502
  Receipt Date: 20140502
  Transmission Date: 20141212
  Serious: No
  Sender: FDA-Public Use
  Company Number: None

PATIENT
  Age: 61 Year
  Sex: Male

DRUGS (1)
  1. EMBREL [Suspect]
     Indication: PSORIASIS
     Route: 058
     Dates: start: 20110511, end: 20140210

REACTIONS (1)
  - Bacterial infection [None]
